FAERS Safety Report 19186897 (Version 1)
Quarter: 2021Q2

REPORT INFORMATION
  Report Type: Spontaneous
  Country: FR (occurrence: FR)
  Receive Date: 20210428
  Receipt Date: 20210428
  Transmission Date: 20210717
  Serious: Yes (Hospitalization, Other)
  Sender: FDA-Public Use
  Company Number: FR-AUROBINDO-AUR-APL-2021-016789

PATIENT
  Sex: Female

DRUGS (12)
  1. MELPHALAN. [Suspect]
     Active Substance: MELPHALAN
     Indication: BONE MARROW CONDITIONING REGIMEN
  2. BENDAMUSTINE HYDROCHLORIDE. [Suspect]
     Active Substance: BENDAMUSTINE HYDROCHLORIDE
     Indication: BONE MARROW CONDITIONING REGIMEN
  3. BENDAMUSTINE HYDROCHLORIDE. [Suspect]
     Active Substance: BENDAMUSTINE HYDROCHLORIDE
     Indication: WALDENSTROM^S MACROGLOBULINAEMIA STAGE IV
  4. RITUXIMAB. [Suspect]
     Active Substance: RITUXIMAB
     Indication: NON-HODGKIN^S LYMPHOMA STAGE IV
     Dosage: 375 MILLIGRAM/SQ. METER
     Route: 065
  5. BENDAMUSTINE HYDROCHLORIDE. [Suspect]
     Active Substance: BENDAMUSTINE HYDROCHLORIDE
     Indication: LYMPHOMA
     Dosage: 90 MILLIGRAM/SQ. METER, 1 CYCLE
     Route: 042
  6. MOZOBIL [Concomitant]
     Active Substance: PLERIXAFOR
     Indication: PREMEDICATION
     Dosage: UNK
     Route: 065
  7. ETOPOSIDE. [Suspect]
     Active Substance: ETOPOSIDE
     Indication: NON-HODGKIN^S LYMPHOMA STAGE IV
     Dosage: 200 MILLIGRAM/SQ. METER, TWO TIMES A DAY
     Route: 065
  8. CYTARABINE. [Suspect]
     Active Substance: CYTARABINE
     Indication: BONE MARROW CONDITIONING REGIMEN
     Dosage: 1 GRAM PER SQUARE METRE, TWO TIMES A DAY
     Route: 065
  9. GRANULOCYTE COLONY STIMULATING FACTOR [Concomitant]
     Active Substance: GRANULOCYTE COLONY-STIMULATING FACTOR NOS
     Indication: PREMEDICATION
     Dosage: UNK
     Route: 065
  10. MELPHALAN. [Suspect]
     Active Substance: MELPHALAN
     Indication: NON-HODGKIN^S LYMPHOMA STAGE IV
     Dosage: 140 MILLIGRAM/SQ. METER
     Route: 065
  11. BENDAMUSTINE HYDROCHLORIDE. [Suspect]
     Active Substance: BENDAMUSTINE HYDROCHLORIDE
     Indication: NON-HODGKIN^S LYMPHOMA STAGE III
     Dosage: 200 MILLIGRAM/SQ. METER
     Route: 042
  12. CYTARABINE. [Suspect]
     Active Substance: CYTARABINE
     Indication: NON-HODGKIN^S LYMPHOMA STAGE IV

REACTIONS (14)
  - Toxicity to various agents [Recovered/Resolved]
  - Venoocclusive liver disease [Recovered/Resolved]
  - Haemorrhage [Unknown]
  - Renal failure [Not Recovered/Not Resolved]
  - Pericardial effusion [Recovered/Resolved]
  - Renal tubular disorder [Unknown]
  - Ascites [Recovered/Resolved]
  - Acute kidney injury [Recovered/Resolved]
  - Generalised oedema [Recovered/Resolved]
  - Thrombotic microangiopathy [Recovered/Resolved]
  - Aplasia [Recovered/Resolved]
  - Off label use [Unknown]
  - Schistocytosis [Recovered/Resolved]
  - Red blood cell abnormality [Recovered/Resolved]
